FAERS Safety Report 12771210 (Version 1)
Quarter: 2016Q3

REPORT INFORMATION
  Report Type: Spontaneous
  Country: US (occurrence: US)
  Receive Date: 20160922
  Receipt Date: 20160922
  Transmission Date: 20161109
  Serious: No
  Sender: FDA-Public Use
  Company Number: US-TARO-2016TAR00335

PATIENT
  Sex: Female

DRUGS (2)
  1. LIDOCAINE OINTMENT USP 5% (UNFLAVORED) [Suspect]
     Active Substance: LIDOCAINE
     Dosage: UNK
  2. LIDOCAINE OINTMENT USP 5% (UNFLAVORED) [Suspect]
     Active Substance: LIDOCAINE
     Dosage: UNK

REACTIONS (2)
  - Accidental exposure to product [Recovered/Resolved]
  - Hypoaesthesia [Recovered/Resolved]
